FAERS Safety Report 5909833-3 (Version None)
Quarter: 2008Q4

REPORT INFORMATION
  Report Type: 
  Country: None (occurrence: None)
  Receive Date: 20081007
  Receipt Date: 20080929
  Transmission Date: 20090506
  Serious: Yes (Other)
  Sender: FDA-Public Use
  Company Number: CA-JNJFOC-20080701159

PATIENT
  Sex: Female
  Weight: 93 kg

DRUGS (4)
  1. REMICADE [Suspect]
     Indication: RHEUMATOID ARTHRITIS
     Route: 042
  2. TYLENOL (CAPLET) [Concomitant]
     Indication: PREMEDICATION
     Route: 048
  3. SOLU-CORTEF [Concomitant]
     Indication: PREMEDICATION
     Route: 042
  4. ANTIHISTAMINE [Concomitant]
     Indication: PREMEDICATION
     Route: 048

REACTIONS (6)
  - HEADACHE [None]
  - HYPOAESTHESIA [None]
  - HYPOKINESIA [None]
  - NAUSEA [None]
  - PAIN IN EXTREMITY [None]
  - PRURITUS [None]
